FAERS Safety Report 6178772-8 (Version None)
Quarter: 2009Q2

REPORT INFORMATION
  Report Type: 
  Country: None (occurrence: None)
  Receive Date: 20090504
  Receipt Date: 20090115
  Transmission Date: 20091009
  Serious: No
  Sender: FDA-Public Use
  Company Number: US-ALEXION-A200800261

PATIENT
  Sex: Male

DRUGS (2)
  1. SOLIRIS [Suspect]
     Dosage: 900 MG, Q14 DAYS
     Route: 042
     Dates: end: 20080304
  2. SOLIRIS [Suspect]
     Dosage: 1200 MG, Q14 DAYS
     Route: 042
     Dates: start: 20080318

REACTIONS (5)
  - ABDOMINAL DISCOMFORT [None]
  - ABDOMINAL RIGIDITY [None]
  - HAEMATURIA [None]
  - HAEMOLYSIS [None]
  - SCLERAL DISCOLOURATION [None]
